FAERS Safety Report 24293423 (Version 1)
Quarter: 2024Q3

REPORT INFORMATION
  Report Type: Spontaneous
  Country: US (occurrence: None)
  Receive Date: 20240906
  Receipt Date: 20240906
  Transmission Date: 20241016
  Serious: No
  Sender: DOMPE FARMACEUTICI
  Company Number: US-FARMAPROD-202308-202401-0119

PATIENT
  Sex: Female

DRUGS (8)
  1. OXERVATE [Suspect]
     Active Substance: CENEGERMIN-BKBJ
     Indication: Neurotrophic keratopathy
     Route: 047
     Dates: start: 20240102
  2. REFRESH OPTIVE MEGA-3 [Concomitant]
     Active Substance: CARBOXYMETHYLCELLULOSE SODIUM\GLYCERIN\POLYSORBATE 80
  3. MOXIFLOXACIN [Concomitant]
     Active Substance: MOXIFLOXACIN
  4. MIEBO [Concomitant]
     Active Substance: PERFLUOROHEXYLOCTANE
  5. PREDNISOLONE/BROMFENAC [Concomitant]
  6. XIIDRA [Concomitant]
     Active Substance: LIFITEGRAST
  7. RESTASIS [Concomitant]
     Active Substance: CYCLOSPORINE
  8. MELOXICAM [Concomitant]
     Active Substance: MELOXICAM

REACTIONS (2)
  - Eye pain [Unknown]
  - Wrong technique in product usage process [Unknown]
